FAERS Safety Report 21546710 (Version 1)
Quarter: 2022Q4

REPORT INFORMATION
  Report Type: Report from Study
  Country: US (occurrence: US)
  Receive Date: 20221103
  Receipt Date: 20221103
  Transmission Date: 20230113
  Serious: No
  Sender: FDA-Public Use
  Company Number: US-ABBVIE-4137229

PATIENT
  Sex: Female

DRUGS (3)
  1. RINVOQ [Suspect]
     Active Substance: UPADACITINIB
     Indication: Neurodermatitis
     Dosage: FORM STRENGTH: 15 MG
     Route: 048
     Dates: start: 2022
  2. DUPIXENT SOS [Concomitant]
     Indication: Product used for unknown indication
     Dosage: 300MG/2ML
  3. TRIAMCINOLON POW [Concomitant]
     Indication: Product used for unknown indication

REACTIONS (1)
  - Eczema [Recovered/Resolved]

NARRATIVE: CASE EVENT DATE: 20220101
